FAERS Safety Report 20218274 (Version 1)
Quarter: 2021Q4

REPORT INFORMATION
  Report Type: Spontaneous
  Country: US (occurrence: US)
  Receive Date: 20211222
  Receipt Date: 20211222
  Transmission Date: 20220304
  Serious: Yes (Death)
  Sender: FDA-Public Use
  Company Number: TEVA-US-09Dec2021-50992

PATIENT
  Age: 37 Year
  Sex: Male

DRUGS (2)
  1. BENDEKA [Suspect]
     Active Substance: BENDAMUSTINE HYDROCHLORIDE
     Indication: Non-Hodgkin^s lymphoma
     Dosage: 204 MG, (CYCLE 1 BR THERAPY)
     Route: 041
     Dates: start: 20201201
  2. TRUXIMA [Suspect]
     Active Substance: RITUXIMAB-ABBS
     Indication: Non-Hodgkin^s lymphoma
     Dosage: 850 MG, (CYCLE 1 BR THERAPY)
     Route: 065
     Dates: start: 20201201

REACTIONS (1)
  - Death [Fatal]

NARRATIVE: CASE EVENT DATE: 20210601
